FAERS Safety Report 9386140 (Version 1)
Quarter: 2013Q3

REPORT INFORMATION
  Report Type: Spontaneous
  Country: US (occurrence: US)
  Receive Date: 20130707
  Receipt Date: 20130707
  Transmission Date: 20140515
  Serious: No
  Sender: FDA-Public Use
  Company Number: US-ALLERGAN-1305179US

PATIENT
  Age: 57 Year
  Sex: Male

DRUGS (2)
  1. LUMIGAN? 0.01% [Suspect]
     Indication: GLAUCOMA
     Route: 047
  2. BYSTOLIC [Concomitant]
     Indication: HYPERTENSION
     Route: 048

REACTIONS (2)
  - Eye colour change [Not Recovered/Not Resolved]
  - Intraocular pressure fluctuation [Recovered/Resolved]
